FAERS Safety Report 8300433-7 (Version None)
Quarter: 2012Q2

REPORT INFORMATION
  Report Type: 
  Country: None (occurrence: None)
  Receive Date: 20120417
  Receipt Date: 20120412
  Transmission Date: 20120825
  Serious: Yes (Other)
  Sender: FDA-Public Use
  Company Number: 2012PL000068

PATIENT
  Age: 33 Year
  Sex: Female

DRUGS (4)
  1. BUSPIRONE HCL [Concomitant]
  2. VALTREX [Concomitant]
  3. OMEPRAZOLE [Concomitant]
  4. LOTRONEX [Suspect]
     Indication: IRRITABLE BOWEL SYNDROME
     Dosage: 2 MG;QD
     Dates: start: 20110101

REACTIONS (3)
  - MATERNAL EXPOSURE DURING PREGNANCY [None]
  - PREGNANCY [None]
  - ABORTION SPONTANEOUS [None]
